FAERS Safety Report 8069635-1 (Version None)
Quarter: 2012Q1

REPORT INFORMATION
  Report Type: 
  Country: None (occurrence: None)
  Receive Date: 20120119
  Receipt Date: 20120109
  Transmission Date: 20120608
  Serious: Yes (Other)
  Sender: FDA-Public Use
  Company Number: A0857149A

PATIENT
  Age: 76 Year
  Sex: Female
  Weight: 60.3738 kg

DRUGS (13)
  1. DIGOXIN [Suspect]
     Indication: HEART VALVE INCOMPETENCE
     Dates: start: 20090601
  2. OXYGEN [Concomitant]
  3. TORSEMIDE [Concomitant]
  4. VALACYCLOVIR HYDROCHLORIDE [Concomitant]
  5. TRACLEER [Concomitant]
  6. SILDENAFIL CITRATE [Suspect]
     Indication: PULMONARY HYPERTENSION
     Dosage: 20 MG / THREETIMES PER DAY /
     Dates: start: 20090101
  7. PROCATEROL HCL [Concomitant]
  8. TIOTROPIUM [Concomitant]
  9. CARVEDILOL [Concomitant]
  10. ZOLPIDEM TARTRATE [Concomitant]
  11. CLONAZEPAM [Concomitant]
  12. ESOMEPRAZOLE [Concomitant]
  13. TOLTERODINE TARTRATE [Concomitant]

REACTIONS (5)
  - EAR PAIN [None]
  - HEART VALVE INCOMPETENCE [None]
  - HYPOTENSION [None]
  - DEAFNESS [None]
  - CARDIAC FAILURE CONGESTIVE [None]
